FAERS Safety Report 6973132-1 (Version None)
Quarter: 2010Q3

REPORT INFORMATION
  Report Type: 
  Country: None (occurrence: None)
  Receive Date: 20100909
  Receipt Date: 20100901
  Transmission Date: 20110219
  Serious: No
  Sender: FDA-Public Use
  Company Number: US-BAXTER-2010BH022016

PATIENT
  Age: 59 Year
  Sex: Male

DRUGS (9)
  1. GAMMAGARD LIQUID [Suspect]
     Indication: CHRONIC INFLAMMATORY DEMYELINATING POLYRADICULONEUROPATHY
     Route: 042
     Dates: start: 20100701
  2. GAMMAGARD LIQUID [Suspect]
     Indication: OFF LABEL USE
     Route: 042
     Dates: start: 20100701
  3. GAMMAGARD LIQUID [Suspect]
     Route: 042
     Dates: start: 20100701
  4. GAMMAGARD LIQUID [Suspect]
     Route: 042
     Dates: start: 20100701
  5. ASPIRIN [Concomitant]
  6. PLAVIX [Concomitant]
  7. TRICOR [Concomitant]
  8. LIPITOR [Concomitant]
  9. METOPROLOL TARTRATE [Concomitant]

REACTIONS (4)
  - ARTHRALGIA [None]
  - CHILLS [None]
  - JOINT SWELLING [None]
  - PYREXIA [None]
